FAERS Safety Report 11131038 (Version 1)
Quarter: 2015Q2

REPORT INFORMATION
  Report Type: Spontaneous
  Country: US (occurrence: US)
  Receive Date: 20150522
  Receipt Date: 20150522
  Transmission Date: 20150821
  Serious: No
  Sender: FDA-Public Use
  Company Number: US-BIOGENIDEC-2015BI068314

PATIENT
  Sex: Male

DRUGS (9)
  1. TECFIDERA [Suspect]
     Active Substance: DIMETHYL FUMARATE
     Indication: MULTIPLE SCLEROSIS
     Route: 048
     Dates: start: 2009, end: 201501
  2. AMPYRA [Concomitant]
     Active Substance: DALFAMPRIDINE
     Route: 048
  3. ESZOPICLONE. [Concomitant]
     Active Substance: ESZOPICLONE
  4. SUBOXONE [Concomitant]
     Active Substance: BUPRENORPHINE HYDROCHLORIDE\NALOXONE HYDROCHLORIDE
     Dates: start: 2010
  5. OXYCODONE [Concomitant]
     Active Substance: OXYCODONE
  6. TRAMADOL [Concomitant]
     Active Substance: TRAMADOL
     Dates: start: 2005
  7. LUNESTA [Concomitant]
     Active Substance: ESZOPICLONE
     Dates: start: 2005
  8. CLONAZEPAM. [Concomitant]
     Active Substance: CLONAZEPAM
  9. KLONOPIN [Concomitant]
     Active Substance: CLONAZEPAM
     Dates: start: 2010

REACTIONS (8)
  - Muscular weakness [Unknown]
  - Hypoaesthesia [Unknown]
  - Drug ineffective [Unknown]
  - Balance disorder [Unknown]
  - Constipation [Unknown]
  - Abdominal distension [Unknown]
  - Abdominal pain upper [Unknown]
  - Diarrhoea [Unknown]
